FAERS Safety Report 8301299-1 (Version None)
Quarter: 2012Q2

REPORT INFORMATION
  Report Type: 
  Country: None (occurrence: None)
  Receive Date: 20120420
  Receipt Date: 20120413
  Transmission Date: 20120825
  Serious: Yes (Other)
  Sender: FDA-Public Use
  Company Number: US-BAYER-201011296NA

PATIENT
  Age: 56 Year
  Sex: Female
  Weight: 64.853 kg

DRUGS (13)
  1. UNSPECIFIED GADOLINIUM-BASED CONTRAST AGENT [Suspect]
     Indication: ANGIOGRAM CEREBRAL
     Dates: start: 20081101, end: 20081101
  2. MAGNEVIST [Suspect]
     Indication: NUCLEAR MAGNETIC RESONANCE IMAGING BRAIN
     Dosage: 15 ML, ONCE
     Route: 042
     Dates: start: 20051012, end: 20051012
  3. PREDNISONE TAB [Concomitant]
  4. VICODIN [Concomitant]
  5. UNSPECIFIED GADOLINIUM-BASED CONTRAST AGENT [Suspect]
     Indication: NUCLEAR MAGNETIC RESONANCE IMAGING
  6. UNSPECIFIED GADOLINIUM-BASED CONTRAST AGENT [Suspect]
     Indication: NUCLEAR MAGNETIC RESONANCE IMAGING BRAIN
  7. ADVAIR DISKUS 100/50 [Concomitant]
  8. NEURONTIN [Concomitant]
  9. ELAVIL [Suspect]
  10. DEPAKOTE [Concomitant]
  11. LASIX [Concomitant]
  12. ATENOLOL [Concomitant]
  13. FLEXERIL [Concomitant]

REACTIONS (33)
  - NEPHROGENIC SYSTEMIC FIBROSIS [None]
  - HYPERKERATOSIS [None]
  - MUSCULOSKELETAL PAIN [None]
  - ANXIETY [None]
  - SKIN HYPERPIGMENTATION [None]
  - GENERAL PHYSICAL HEALTH DETERIORATION [None]
  - SKIN EXFOLIATION [None]
  - EXCORIATION [None]
  - ANHEDONIA [None]
  - PRURITUS [None]
  - SKIN HYPERTROPHY [None]
  - RASH PAPULAR [None]
  - OEDEMA PERIPHERAL [None]
  - SKIN OEDEMA [None]
  - SKIN BURNING SENSATION [None]
  - DEFORMITY [None]
  - LICHEN PLANUS [None]
  - SKIN INDURATION [None]
  - MYALGIA [None]
  - SKIN PLAQUE [None]
  - SCAR [None]
  - ALOPECIA [None]
  - EMOTIONAL DISTRESS [None]
  - SKIN DISCOLOURATION [None]
  - SCLERAL DISORDER [None]
  - JOINT STIFFNESS [None]
  - MORPHOEA [None]
  - ASTHENIA [None]
  - DEPRESSION [None]
  - PAIN [None]
  - RASH [None]
  - SKIN TIGHTNESS [None]
  - ARTHRALGIA [None]
